FAERS Safety Report 17065432 (Version 1)
Quarter: 2019Q4

REPORT INFORMATION
  Report Type: Report from Study
  Country: US (occurrence: US)
  Receive Date: 20191122
  Receipt Date: 20191122
  Transmission Date: 20200122
  Serious: Yes (Hospitalization)
  Sender: FDA-Public Use
  Company Number: US-GLAXOSMITHKLINE-US2019TSO201638

PATIENT
  Sex: Female

DRUGS (2)
  1. KEYTRUDA [Concomitant]
     Active Substance: PEMBROLIZUMAB
     Indication: PRODUCT USED FOR UNKNOWN INDICATION
     Dosage: UNK, Q3 WEEKS
  2. NIRAPARIB [Suspect]
     Active Substance: NIRAPARIB
     Indication: CHOLANGIOCARCINOMA
     Dosage: 100 MG, 2PM
     Dates: start: 20191101

REACTIONS (3)
  - Product use in unapproved indication [Unknown]
  - Underdose [Unknown]
  - Hospitalisation [Not Recovered/Not Resolved]
